FAERS Safety Report 5752904-5 (Version None)
Quarter: 2008Q2

REPORT INFORMATION
  Report Type: 
  Country: None (occurrence: None)
  Receive Date: 20080529
  Receipt Date: 20080523
  Transmission Date: 20081010
  Serious: Yes (Hospitalization)
  Sender: FDA-Public Use
  Company Number: JP-BOEHRINGER INGELHEIM GMBH, GERMANY-2008-BP-05316NB

PATIENT
  Sex: Male
  Weight: 83 kg

DRUGS (5)
  1. MICARDIS [Suspect]
     Indication: HYPERTENSION
     Route: 048
     Dates: start: 20060920
  2. ASPIRIN [Concomitant]
     Indication: PROPHYLAXIS
     Route: 048
     Dates: start: 20060920
  3. ACTOS [Concomitant]
     Route: 048
  4. BASEN [Concomitant]
     Route: 048
  5. LIPITOR [Concomitant]
     Route: 048
     Dates: start: 20071212

REACTIONS (1)
  - CEREBRAL INFARCTION [None]
